FAERS Safety Report 23213242 (Version 1)
Quarter: 2023Q4

REPORT INFORMATION
  Report Type: Spontaneous
  Country: FR (occurrence: FR)
  Receive Date: 20231121
  Receipt Date: 20231121
  Transmission Date: 20240109
  Serious: Yes (Hospitalization, Other)
  Sender: FDA-Public Use
  Company Number: FR-AFSSAPS-CF2023000361

PATIENT
  Age: 61 Year
  Sex: Female
  Weight: 73 kg

DRUGS (1)
  1. FINGOLIMOD [Suspect]
     Active Substance: FINGOLIMOD
     Indication: Relapsing-remitting multiple sclerosis
     Dosage: 1 TAB AT 0.5 MG PER DAY
     Route: 048
     Dates: start: 201310, end: 20230721

REACTIONS (1)
  - Neurocryptococcosis [Recovering/Resolving]

NARRATIVE: CASE EVENT DATE: 20230719
